FAERS Safety Report 9976355 (Version 1)
Quarter: 2014Q1

REPORT INFORMATION
  Report Type: Report from Study
  Country: US (occurrence: US)
  Receive Date: 20140306
  Receipt Date: 20140306
  Transmission Date: 20141002
  Serious: No
  Sender: FDA-Public Use
  Company Number: US-ABBVIE-13P-163-1164356-00

PATIENT
  Sex: Female

DRUGS (3)
  1. HUMIRA [Suspect]
     Indication: PRODUCT USED FOR UNKNOWN INDICATION
  2. PROPANOLOL [Concomitant]
     Indication: HYPERTHYROIDISM
  3. METHIMAZOLE [Concomitant]
     Indication: HYPERTHYROIDISM
     Dosage: 3 TABS DAILY

REACTIONS (4)
  - Urticaria [Unknown]
  - Pain [Unknown]
  - Injection site pain [Unknown]
  - Injection site urticaria [Unknown]
